FAERS Safety Report 15957490 (Version 1)
Quarter: 2019Q1

REPORT INFORMATION
  Report Type: Spontaneous
  Country: US (occurrence: US)
  Receive Date: 20190213
  Receipt Date: 20190213
  Transmission Date: 20190417
  Serious: Yes (Life-Threatening, Hospitalization)
  Sender: FDA-Public Use
  Company Number: None

PATIENT
  Age: 22 Year
  Sex: Female
  Weight: 48 kg

DRUGS (1)
  1. BENZOCAINE. [Suspect]
     Active Substance: BENZOCAINE
     Indication: SURGERY
     Dosage: ?          OTHER FREQUENCY:ONE TIME;?
     Route: 007
     Dates: start: 20190117

REACTIONS (2)
  - Pleural effusion [None]
  - Methaemoglobinaemia [None]

NARRATIVE: CASE EVENT DATE: 20190117
